FAERS Safety Report 9232237 (Version 1)
Quarter: 2013Q2

REPORT INFORMATION
  Report Type: Spontaneous
  Country: BR (occurrence: BR)
  Receive Date: 20130415
  Receipt Date: 20130415
  Transmission Date: 20140414
  Serious: Yes (Other)
  Sender: FDA-Public Use
  Company Number: BR-AMGEN-BRASP2013025609

PATIENT
  Age: 49 Year
  Sex: Female
  Weight: 51 kg

DRUGS (7)
  1. ENBREL [Suspect]
     Indication: ANKYLOSING SPONDYLITIS
     Dosage: 50 MG, 1X/WEEK
     Route: 058
     Dates: start: 201204
  2. CIPROFLOXACIN [Suspect]
     Indication: URINARY TRACT INFECTION
     Dosage: UNK
  3. MACRODANTINA [Suspect]
     Indication: URINARY TRACT INFECTION
     Dosage: UNK
  4. PURAN T4 [Concomitant]
     Indication: THYROID DISORDER
     Dosage: UNKNOWN DOSE, 1X/DAY
     Dates: start: 2008
  5. INDOMETACIN [Concomitant]
     Indication: ANKYLOSING SPONDYLITIS
     Dosage: 50 MG, 1X/DAY
     Dates: start: 1997
  6. OMEPRAZOLE [Concomitant]
     Indication: ABDOMINAL DISCOMFORT
     Dosage: 20 MG, 1X/DAY
  7. ACETAMINOPHEN [Concomitant]
     Indication: PAIN
     Dosage: 1 DF, AS NEEDED (WHEN FEELING PAIN)

REACTIONS (6)
  - Pathogen resistance [Unknown]
  - Tachycardia [Unknown]
  - Abdominal discomfort [Unknown]
  - Vomiting [Unknown]
  - Sluggishness [Unknown]
  - Urinary tract infection [Unknown]
